FAERS Safety Report 5094693-6 (Version None)
Quarter: 2006Q3

REPORT INFORMATION
  Report Type: 
  Country: None (occurrence: None)
  Receive Date: 20060731
  Receipt Date: 20060418
  Transmission Date: 20061208
  Serious: No
  Sender: FDA-Public Use
  Company Number: 2006PV012282

PATIENT
  Age: 70 Year
  Sex: Female
  Weight: 72.1219 kg

DRUGS (4)
  1. BYETTA [Suspect]
     Indication: DIABETES MELLITUS NON-INSULIN-DEPENDENT
     Dosage: 5 MCG;BID;SC
     Route: 058
     Dates: start: 20060101, end: 20060413
  2. NPH INSULIN [Concomitant]
  3. LOMOTIL [Concomitant]
  4. EQUATE/ANTIGAS [Concomitant]

REACTIONS (6)
  - ABDOMINAL DISTENSION [None]
  - BLOOD GLUCOSE DECREASED [None]
  - BLOOD GLUCOSE INCREASED [None]
  - BOWEL SOUNDS ABNORMAL [None]
  - DIARRHOEA [None]
  - WEIGHT DECREASED [None]
